FAERS Safety Report 10455091 (Version 4)
Quarter: 2016Q3

REPORT INFORMATION
  Report Type: Spontaneous
  Country: BR (occurrence: BR)
  Receive Date: 20140916
  Receipt Date: 20160719
  Transmission Date: 20161109
  Serious: Yes (Hospitalization, Other)
  Sender: FDA-Public Use
  Company Number: BR-AMGEN-BRASP2014067062

PATIENT
  Age: 44 Year
  Sex: Female
  Weight: 62 kg

DRUGS (9)
  1. LYRICA [Concomitant]
     Active Substance: PREGABALIN
     Dosage: UNK
  2. LYRICA [Concomitant]
     Active Substance: PREGABALIN
     Dosage: 75 MG, UNK
  3. ALPRAZOLAM. [Concomitant]
     Active Substance: ALPRAZOLAM
     Dosage: UNK
  4. ALPRAZOLAN [Concomitant]
     Active Substance: ALPRAZOLAM
     Dosage: 1 MG, UNK
  5. ENBREL [Suspect]
     Active Substance: ETANERCEPT
     Indication: RHEUMATOID ARTHRITIS
     Dosage: 50 MG, ONCE WEEKLY
     Route: 065
     Dates: start: 20140811
  6. ALPRAZOLAM. [Concomitant]
     Active Substance: ALPRAZOLAM
     Dosage: UNK
  7. PREDNISONE. [Concomitant]
     Active Substance: PREDNISONE
     Dosage: 5 MG, UNK
  8. VENLAFAXINE HYDROCHLORIDE. [Concomitant]
     Active Substance: VENLAFAXINE HYDROCHLORIDE
     Dosage: 37.5 MG, UNK
  9. ADDERA D3 [Concomitant]
     Active Substance: CHOLECALCIFEROL
     Dosage: 5 MG, UNK

REACTIONS (14)
  - Hypersensitivity [Unknown]
  - Dyspnoea [Unknown]
  - Injection site erythema [Unknown]
  - Nephrolithiasis [Not Recovered/Not Resolved]
  - Influenza [Unknown]
  - Back pain [Unknown]
  - Headache [Unknown]
  - Osteoarthritis [Unknown]
  - Cholelithiasis [Not Recovered/Not Resolved]
  - Rheumatoid arthritis [Unknown]
  - Gastritis [Not Recovered/Not Resolved]
  - Abdominal pain [Not Recovered/Not Resolved]
  - Oropharyngeal pain [Unknown]
  - Injection site pain [Unknown]

NARRATIVE: CASE EVENT DATE: 2014
